FAERS Safety Report 7271292-9 (Version None)
Quarter: 2011Q1

REPORT INFORMATION
  Report Type: 
  Country: None (occurrence: None)
  Receive Date: 20110203
  Receipt Date: 20110125
  Transmission Date: 20110831
  Serious: Yes (Hospitalization)
  Sender: FDA-Public Use
  Company Number: US-BIOGENIDEC-2011BI001402

PATIENT
  Age: 30 Year
  Sex: Female
  Weight: 45 kg

DRUGS (3)
  1. AVONEX [Suspect]
     Route: 030
     Dates: start: 20100101, end: 20100701
  2. COPAXONE [Concomitant]
     Indication: MULTIPLE SCLEROSIS
  3. AVONEX [Suspect]
     Indication: MULTIPLE SCLEROSIS
     Route: 030
     Dates: start: 20100701, end: 20100701

REACTIONS (3)
  - URTICARIA [None]
  - PRURITUS ALLERGIC [None]
  - DRUG INEFFECTIVE [None]
